FAERS Safety Report 5154057-3 (Version None)
Quarter: 2006Q4

REPORT INFORMATION
  Report Type: 
  Country: None (occurrence: None)
  Receive Date: 20061116
  Receipt Date: 20061116
  Transmission Date: 20070319
  Serious: Yes (Other)
  Sender: FDA-Public Use
  Company Number: None

PATIENT
  Age: 48 Year
  Sex: Female
  Weight: 62.5964 kg

DRUGS (1)
  1. AVELOX [Suspect]
     Indication: SINUSITIS
     Dosage: 1    DAILY   UNK
     Dates: start: 20061111, end: 20061111

REACTIONS (9)
  - CHROMATURIA [None]
  - ERYTHEMA [None]
  - EYE SWELLING [None]
  - FAECES DISCOLOURED [None]
  - PHARYNGEAL OEDEMA [None]
  - PRURITUS [None]
  - RASH GENERALISED [None]
  - SKIN DISCOLOURATION [None]
  - URTICARIA [None]
